FAERS Safety Report 22989998 (Version 6)
Quarter: 2024Q3

REPORT INFORMATION
  Report Type: Spontaneous
  Country: JP (occurrence: JP)
  Receive Date: 20230927
  Receipt Date: 20240711
  Transmission Date: 20241017
  Serious: Yes (Death, Hospitalization, Other)
  Sender: GLAXOSMITHKLINE
  Company Number: JP-GLAXOSMITHKLINE-JP2023JPN131190

PATIENT

DRUGS (2)
  1. DAPRODUSTAT [Suspect]
     Active Substance: DAPRODUSTAT
     Indication: Nephrogenic anaemia
     Dosage: 2 MG
     Dates: start: 202210
  2. DAPRODUSTAT [Suspect]
     Active Substance: DAPRODUSTAT
     Dosage: 8 MG
     Dates: start: 20230905, end: 20230920

REACTIONS (12)
  - Cardiac failure congestive [Fatal]
  - COVID-19 [Fatal]
  - Respiratory failure [Fatal]
  - Respiratory arrest [Fatal]
  - Cardiac arrest [Fatal]
  - Acute myeloid leukaemia [Unknown]
  - Pneumonia [Unknown]
  - Hypoxia [Unknown]
  - Depressed level of consciousness [Unknown]
  - Haemoglobin decreased [Unknown]
  - Pyrexia [Recovered/Resolved]
  - Drug ineffective [Unknown]

NARRATIVE: CASE EVENT DATE: 20231019
